FAERS Safety Report 6022483-6 (Version None)
Quarter: 2008Q4

REPORT INFORMATION
  Report Type: 
  Country: None (occurrence: None)
  Receive Date: 20081230
  Receipt Date: 20081217
  Transmission Date: 20090506
  Serious: Yes (Other)
  Sender: FDA-Public Use
  Company Number: PHBS1993NL03445

PATIENT
  Age: 35 Year
  Sex: Male

DRUGS (1)
  1. VOLTAREN [Suspect]
     Indication: NECK PAIN
     Dosage: UNK
     Route: 030

REACTIONS (5)
  - COORDINATION ABNORMAL [None]
  - EMBOLIA CUTIS MEDICAMENTOSA [None]
  - INJECTION SITE REACTION [None]
  - MUSCLE ATROPHY [None]
  - PAIN [None]
